FAERS Safety Report 5928337-5 (Version None)
Quarter: 2008Q4

REPORT INFORMATION
  Report Type: 
  Country: None (occurrence: None)
  Receive Date: 20081023
  Receipt Date: 20081011
  Transmission Date: 20090506
  Serious: Yes (Other)
  Sender: FDA-Public Use
  Company Number: US-PFIZER INC-2008055987

PATIENT
  Age: 78 Year
  Sex: Female
  Weight: 63.5 kg

DRUGS (10)
  1. LYRICA [Suspect]
     Indication: RADICULOPATHY
     Route: 048
     Dates: start: 20070628, end: 20080501
  2. LYRICA [Suspect]
     Indication: BACK PAIN
  3. ADVIL [Concomitant]
     Dosage: FREQ:AS NEEDED AT BEDTIME
  4. ACTIVELLA [Concomitant]
     Dosage: FREQ:DAILY
     Route: 048
  5. PROZAC [Concomitant]
     Dosage: DAILY DOSE:60MG-FREQ:DAILY
     Route: 048
  6. FOSAMAX [Concomitant]
  7. ADVAIR DISKUS 100/50 [Concomitant]
     Dosage: FREQ:250/50MG DAILY
  8. ATROVENT [Concomitant]
     Dosage: FREQ:DAILY
  9. XOPENEX [Concomitant]
     Dosage: DAILY DOSE:45MCG-FREQ:DAILY
     Route: 055
  10. MACRODANTIN [Concomitant]

REACTIONS (3)
  - AMNESIA [None]
  - CATARACT [None]
  - VISION BLURRED [None]
